FAERS Safety Report 21140219 (Version 1)
Quarter: 2022Q3

REPORT INFORMATION
  Report Type: Report from Study
  Country: US (occurrence: US)
  Receive Date: 20220728
  Receipt Date: 20220728
  Transmission Date: 20221026
  Serious: Yes (Hospitalization)
  Sender: FDA-Public Use
  Company Number: ENDG22-04427

PATIENT
  Sex: Male

DRUGS (4)
  1. PITOCIN [Suspect]
     Active Substance: OXYTOCIN
     Indication: Labour augmentation
     Dosage: 10 MIU/MIN, UNKNOWN
     Route: 064
     Dates: start: 20220208, end: 20220209
  2. PITOCIN [Suspect]
     Active Substance: OXYTOCIN
     Dosage: UNK UNKNOWN, UNKNOWN (OXYTOCIN DECREASED AND THEN STOPPED)
     Route: 042
     Dates: start: 20220209, end: 20220209
  3. PITOCIN [Suspect]
     Active Substance: OXYTOCIN
     Dosage: UNK UNKNOWN, UNKNOWN (OXYTOCIN RESTARTED THEN INCREASED RATE)
     Route: 064
     Dates: start: 20220209, end: 20220209
  4. INVESTIGATIONAL PRODUCT [Suspect]
     Active Substance: INVESTIGATIONAL PRODUCT
     Indication: Immunisation
     Dosage: UNK UNKNOWN, SINGLE (BLINDED, INFORMATION WITHHELD)
     Route: 064
     Dates: start: 20220104, end: 20220104

REACTIONS (2)
  - Nonreassuring foetal heart rate pattern [Recovered/Resolved]
  - Foetal exposure during pregnancy [Recovered/Resolved]

NARRATIVE: CASE EVENT DATE: 20220207
